FAERS Safety Report 25928056 (Version 2)
Quarter: 2025Q4

REPORT INFORMATION
  Report Type: Spontaneous
  Country: US (occurrence: US)
  Receive Date: 20251016
  Receipt Date: 20251022
  Transmission Date: 20260118
  Serious: No
  Sender: TOLMAR
  Company Number: US-Tolmar-TLM-2025-07361

PATIENT

DRUGS (2)
  1. FENSOLVI [Suspect]
     Active Substance: LEUPROLIDE ACETATE
     Indication: Precocious puberty
     Dosage: SN: 6349911564207, ?GTIN: 00362935163602, ?EXPIRATION DATE: OCT-2026; SEP-2026; SEP-2026?DOSE NOT AD
     Route: 065
  2. DEVICE [Suspect]
     Active Substance: DEVICE
     Indication: Precocious puberty
     Dosage: SN: 6349911564207, ?GTIN: 00362935163602, ?EXPIRATION DATE: OCT-2026; SEP-2026; SEP-2026
     Route: 065

REACTIONS (3)
  - Intercepted product preparation error [Unknown]
  - Wrong technique in product usage process [Unknown]
  - Device occlusion [Unknown]
